FAERS Safety Report 9820637 (Version 2)
Quarter: 2014Q1

REPORT INFORMATION
  Report Type: Spontaneous
  Country: BE (occurrence: BE)
  Receive Date: 20140116
  Receipt Date: 20140203
  Transmission Date: 20141002
  Serious: Yes (Other)
  Sender: FDA-Public Use
  Company Number: BE-JNJFOC-20140107112

PATIENT
  Age: 21 Year
  Sex: Male

DRUGS (1)
  1. SPORANOX [Suspect]
     Indication: TINEA VERSICOLOUR
     Dosage: SINCE 5 DAYS
     Route: 065
     Dates: start: 20140110, end: 20140114

REACTIONS (1)
  - Supraventricular extrasystoles [Recovered/Resolved]
